FAERS Safety Report 4746612-7 (Version None)
Quarter: 2005Q3

REPORT INFORMATION
  Report Type: 
  Country: None (occurrence: None)
  Receive Date: 20050815
  Receipt Date: 20050803
  Transmission Date: 20060218
  Serious: Yes (Other)
  Sender: FDA-Public Use
  Company Number: 2005110972

PATIENT
  Sex: Female

DRUGS (3)
  1. LIPITOR [Suspect]
     Indication: ILL-DEFINED DISORDER
  2. ZOLOFT [Suspect]
     Indication: ILL-DEFINED DISORDER
  3. NEXIUM [Concomitant]

REACTIONS (2)
  - HEADACHE [None]
  - LUNG NEOPLASM MALIGNANT [None]
